FAERS Safety Report 7519290-1 (Version None)
Quarter: 2011Q2

REPORT INFORMATION
  Report Type: 
  Country: None (occurrence: None)
  Receive Date: 20110602
  Receipt Date: 20110527
  Transmission Date: 20111010
  Serious: Yes (Other)
  Sender: FDA-Public Use
  Company Number: A0926926A

PATIENT
  Age: 16 Year
  Sex: Female

DRUGS (4)
  1. ALLI [Suspect]
     Indication: WEIGHT LOSS DIET
     Route: 048
  2. ADDERALL 10 [Concomitant]
  3. TRAZODONE HCL [Concomitant]
  4. LAMICTAL [Concomitant]

REACTIONS (11)
  - DRUG ADMINISTRATION ERROR [None]
  - PAIN [None]
  - MALAISE [None]
  - DEHYDRATION [None]
  - VOMITING [None]
  - HAEMATURIA [None]
  - NEPHROLITHIASIS [None]
  - ABDOMINAL PAIN UPPER [None]
  - APHAGIA [None]
  - HYDRONEPHROSIS [None]
  - HYDROURETER [None]
